FAERS Safety Report 12140661 (Version 1)
Quarter: 2016Q1

REPORT INFORMATION
  Report Type: Spontaneous
  Country: US (occurrence: US)
  Receive Date: 20160303
  Receipt Date: 20160303
  Transmission Date: 20160526
  Serious: Yes (Death)
  Sender: FDA-Public Use
  Company Number: US-MALLINCKRODT-T201600625

PATIENT
  Age: 74 Year
  Sex: Female

DRUGS (1)
  1. H.P. ACTHAR [Suspect]
     Active Substance: CORTICOTROPIN
     Indication: PRODUCT USED FOR UNKNOWN INDICATION
     Dosage: 80 UNITS TWICE WKLY
     Route: 058
     Dates: start: 20151216, end: 20160219

REACTIONS (1)
  - Death [Fatal]

NARRATIVE: CASE EVENT DATE: 20160219
